FAERS Safety Report 22151198 (Version 1)
Quarter: 2023Q1

REPORT INFORMATION
  Report Type: Spontaneous
  Country: US (occurrence: US)
  Receive Date: 20230329
  Receipt Date: 20230329
  Transmission Date: 20230418
  Serious: Yes (Death, Life-Threatening, Hospitalization)
  Sender: FDA-Public Use
  Company Number: US-drreddys-LIT/USA/23/0162882

PATIENT
  Age: 47 Year
  Sex: Female

DRUGS (10)
  1. DIPHENHYDRAMINE HYDROCHLORIDE [Suspect]
     Active Substance: DIPHENHYDRAMINE HYDROCHLORIDE
     Indication: Kounis syndrome
     Route: 042
  2. DIPHENHYDRAMINE HYDROCHLORIDE [Suspect]
     Active Substance: DIPHENHYDRAMINE HYDROCHLORIDE
     Indication: Acute myocardial infarction
  3. NITROGLYCERIN [Suspect]
     Active Substance: NITROGLYCERIN
     Indication: Kounis syndrome
     Route: 022
  4. NITROGLYCERIN [Suspect]
     Active Substance: NITROGLYCERIN
     Indication: Acute myocardial infarction
  5. HYDROCORTISONE [Suspect]
     Active Substance: HYDROCORTISONE
     Indication: Acute myocardial infarction
  6. HYDROCORTISONE [Suspect]
     Active Substance: HYDROCORTISONE
     Indication: Kounis syndrome
  7. EPINEPHRINE [Suspect]
     Active Substance: EPINEPHRINE
     Indication: Acute myocardial infarction
  8. EPINEPHRINE [Suspect]
     Active Substance: EPINEPHRINE
     Indication: Kounis syndrome
  9. ZOTAROLIMUS [Suspect]
     Active Substance: ZOTAROLIMUS
     Indication: Acute myocardial infarction
  10. ZOTAROLIMUS [Suspect]
     Active Substance: ZOTAROLIMUS
     Indication: Kounis syndrome

REACTIONS (3)
  - Myocardial infarction [Fatal]
  - Vascular stent thrombosis [Fatal]
  - Drug ineffective for unapproved indication [Unknown]
